FAERS Safety Report 9279641 (Version 1)
Quarter: 2013Q2

REPORT INFORMATION
  Report Type: Spontaneous
  Country: US (occurrence: US)
  Receive Date: 20130509
  Receipt Date: 20130509
  Transmission Date: 20140414
  Serious: Yes (Hospitalization)
  Sender: FDA-Public Use
  Company Number: US-BIOGENIDEC-2013BI040890

PATIENT
  Age: 49 Year
  Sex: Male

DRUGS (6)
  1. TYSABRI [Suspect]
     Indication: MULTIPLE SCLEROSIS
     Route: 042
     Dates: start: 20120723
  2. WELLBUTRIN [Concomitant]
     Indication: DEPRESSION
  3. ZOCOR [Concomitant]
     Indication: BLOOD CHOLESTEROL INCREASED
  4. LOPRESSOR [Concomitant]
     Indication: HYPERTENSION
  5. GABAPENTIN [Concomitant]
     Indication: RESTLESS LEGS SYNDROME
  6. FLOMAX [Concomitant]
     Indication: PROSTATOMEGALY

REACTIONS (2)
  - Chest pain [Recovered/Resolved]
  - Myositis [Recovered/Resolved]
